FAERS Safety Report 10544388 (Version 1)
Quarter: 2014Q4

REPORT INFORMATION
  Report Type: Spontaneous
  Country: US (occurrence: US)
  Receive Date: 20141027
  Receipt Date: 20141027
  Transmission Date: 20150529
  Serious: Yes (Hospitalization, Other)
  Sender: FDA-Public Use
  Company Number: US-GLAXOSMITHKLINE-US2014009229

PATIENT
  Age: 33 Year
  Sex: Male

DRUGS (3)
  1. LAMICTAL [Suspect]
     Active Substance: LAMOTRIGINE
     Indication: SEIZURE
     Dosage: 200 MG, BID
     Route: 048
  2. SOTALOL. [Concomitant]
     Active Substance: SOTALOL
  3. ASPIRIN. [Concomitant]
     Active Substance: ASPIRIN

REACTIONS (5)
  - White blood cell count increased [Recovered/Resolved]
  - Diarrhoea [Recovered/Resolved]
  - Viral infection [Recovered/Resolved]
  - Seizure [Recovered/Resolved]
  - Malabsorption [Unknown]

NARRATIVE: CASE EVENT DATE: 201410
